FAERS Safety Report 20987153 (Version 2)
Quarter: 2022Q2

REPORT INFORMATION
  Report Type: Spontaneous
  Country: IT (occurrence: IT)
  Receive Date: 20220621
  Receipt Date: 20220623
  Transmission Date: 20220721
  Serious: Yes (Disabling)
  Sender: FDA-Public Use
  Company Number: IT-ENDO PHARMACEUTICALS INC-2022-003622

PATIENT
  Age: 33 Year
  Sex: Male
  Weight: 125 kg

DRUGS (1)
  1. FORTESTA [Suspect]
     Active Substance: TESTOSTERONE
     Indication: Hypogonadism
     Dosage: 60 MG, DAILY
     Route: 003
     Dates: start: 20210201, end: 20210401

REACTIONS (2)
  - Testicular retraction [Not Recovered/Not Resolved]
  - Testicular atrophy [Not Recovered/Not Resolved]

NARRATIVE: CASE EVENT DATE: 20210401
